FAERS Safety Report 12567011 (Version 1)
Quarter: 2016Q3

REPORT INFORMATION
  Report Type: Spontaneous
  Country: SE (occurrence: SE)
  Receive Date: 20160718
  Receipt Date: 20160718
  Transmission Date: 20161109
  Serious: Yes (Disabling)
  Sender: FDA-Public Use
  Company Number: SE-OTSUKA-2016_012226

PATIENT
  Age: 30 Year
  Sex: Male

DRUGS (7)
  1. ZOPIKLON [Concomitant]
     Active Substance: ZOPICLONE
     Indication: INSOMNIA
     Dosage: 7.5 MG, UNK
     Route: 065
  2. ABILIFY MAINTENA [Suspect]
     Active Substance: ARIPIPRAZOLE
     Indication: PSYCHOTIC DISORDER
     Dosage: 400 MG, UNK
     Route: 030
     Dates: start: 20160414, end: 20160609
  3. VALDOXAN [Concomitant]
     Active Substance: AGOMELATINE
     Indication: ANXIETY
  4. PROPAVAN [Concomitant]
     Active Substance: PROPIOMAZINE
     Indication: INSOMNIA
     Dosage: 25 MG, UNK
     Route: 065
     Dates: start: 20160421
  5. BEVIPLEX [Concomitant]
     Indication: VITAMIN B COMPLEX DEFICIENCY
     Dosage: UNK, BID
     Dates: start: 20160324
  6. NOZINAN [Concomitant]
     Active Substance: LEVOMEPROMAZINE
     Indication: INSOMNIA
     Dosage: 50 MG, UNK
     Route: 065
  7. VALDOXAN [Concomitant]
     Active Substance: AGOMELATINE
     Indication: DEPRESSION
     Dosage: 25 MG, QD
     Route: 065
     Dates: start: 20160427

REACTIONS (4)
  - Off label use [Unknown]
  - Sleep disorder [Not Recovered/Not Resolved]
  - Tremor [Not Recovered/Not Resolved]
  - Drug level decreased [Unknown]

NARRATIVE: CASE EVENT DATE: 20160414
